FAERS Safety Report 5335887-1 (Version None)
Quarter: 2007Q2

REPORT INFORMATION
  Report Type: 
  Country: None (occurrence: None)
  Receive Date: 20070301
  Receipt Date: 20060913
  Transmission Date: 20071010
  Serious: Yes (Other)
  Sender: FDA-Public Use
  Company Number: 229861

PATIENT
  Age: 11 Year
  Sex: Male
  Weight: 36 kg

DRUGS (2)
  1. NUTROPIN AQ [Suspect]
     Indication: RENAL FAILURE
     Dosage: 2.4 MG, 6/WEEK, SUBCUTANEOUS
     Route: 058
     Dates: start: 20030428
  2. ZOLOFT [Concomitant]

REACTIONS (1)
  - SCOLIOSIS [None]
